FAERS Safety Report 14112265 (Version 1)
Quarter: 2017Q4

REPORT INFORMATION
  Report Type: Report from Study
  Country: US (occurrence: US)
  Receive Date: 20171020
  Receipt Date: 20171020
  Transmission Date: 20180321
  Serious: Yes (Hospitalization)
  Sender: FDA-Public Use
  Company Number: US-ACTELION-A-US2017-161191

PATIENT
  Age: 89 Year
  Sex: Female
  Weight: 83.9 kg

DRUGS (3)
  1. AMLODIPINE [Concomitant]
     Active Substance: AMLODIPINE BESYLATE
  2. OPSUMIT [Suspect]
     Active Substance: MACITENTAN
     Indication: PULMONARY ARTERIAL HYPERTENSION
     Dosage: 10 MG, QD
     Route: 048
  3. WARFARIN [Concomitant]
     Active Substance: WARFARIN

REACTIONS (6)
  - Rectal haemorrhage [Unknown]
  - Seizure [Unknown]
  - Contusion [Unknown]
  - Ulcer [Unknown]
  - Mouth haemorrhage [Unknown]
  - Syncope [Unknown]
